FAERS Safety Report 4578279-5 (Version None)
Quarter: 2005Q1

REPORT INFORMATION
  Report Type: 
  Country: None (occurrence: None)
  Receive Date: 20050209
  Receipt Date: 20050128
  Transmission Date: 20050727
  Serious: Yes (Other)
  Sender: FDA-Public Use
  Company Number: BASF-05-001

PATIENT
  Age: 61 Year
  Sex: Male
  Weight: 99.7913 kg

DRUGS (2)
  1. INTRON A [Suspect]
     Indication: MALIGNANT MELANOMA STAGE III
     Dosage: 44 MU 5X WEEKLY INTRAVENOUS
     Route: 042
     Dates: start: 20041115, end: 20041221
  2. WELLBUTRIN [Suspect]
     Indication: DEPRESSION
     Dosage: 300 MG BID ORAL
     Route: 048
     Dates: start: 20041116

REACTIONS (8)
  - ASTHENIA [None]
  - CONFUSIONAL STATE [None]
  - DECREASED APPETITE [None]
  - DEHYDRATION [None]
  - DRUG INTERACTION [None]
  - LETHARGY [None]
  - NAUSEA [None]
  - ORAL INTAKE REDUCED [None]
